FAERS Safety Report 19765149 (Version 1)
Quarter: 2021Q3

REPORT INFORMATION
  Report Type: Spontaneous
  Country: US (occurrence: US)
  Receive Date: 20210830
  Receipt Date: 20210830
  Transmission Date: 20211014
  Serious: No
  Sender: FDA-Public Use
  Company Number: US-ANIPHARMA-2021-US-011569

PATIENT
  Sex: Male

DRUGS (5)
  1. HEPARIN [Concomitant]
     Active Substance: HEPARIN SODIUM
     Route: 065
  2. IBRANCE [Suspect]
     Active Substance: PALBOCICLIB
     Dosage: 125 MG DAILY
     Route: 048
     Dates: start: 20210322
  3. ELIQUIS [Suspect]
     Active Substance: APIXABAN
     Route: 065
  4. ANASTROZOLE. [Suspect]
     Active Substance: ANASTROZOLE
     Indication: PRODUCT USED FOR UNKNOWN INDICATION
     Route: 065
  5. TAMOXIFEN [Concomitant]
     Active Substance: TAMOXIFEN
     Route: 065

REACTIONS (7)
  - Off label use [Unknown]
  - Dry throat [Unknown]
  - Nocturia [Unknown]
  - Productive cough [Unknown]
  - Stress [Unknown]
  - Oral pain [Unknown]
  - Stomatitis [Unknown]
